FAERS Safety Report 12715493 (Version 2)
Quarter: 2016Q3

REPORT INFORMATION
  Report Type: Spontaneous
  Country: JP (occurrence: JP)
  Receive Date: 20160906
  Receipt Date: 20160921
  Transmission Date: 20161109
  Serious: Yes (Death, Other)
  Sender: FDA-Public Use
  Company Number: JP-009507513-1609JPN001298

PATIENT

DRUGS (2)
  1. VANCOMYCIN [Concomitant]
     Active Substance: VANCOMYCIN
     Indication: ENDOCARDITIS
     Dosage: DAILY DOSAGE UNKNOWN
     Route: 065
  2. CUBICIN [Suspect]
     Active Substance: DAPTOMYCIN
     Indication: ENDOCARDITIS
     Dosage: DAILY DOSAGE UNKNOWN
     Route: 041

REACTIONS (2)
  - Mycetoma mycotic [Unknown]
  - Embolic cerebral infarction [Fatal]

NARRATIVE: CASE EVENT DATE: 201603
